FAERS Safety Report 4421691-5 (Version None)
Quarter: 2004Q3

REPORT INFORMATION
  Report Type: 
  Country: None (occurrence: None)
  Receive Date: 20040806
  Receipt Date: 20040720
  Transmission Date: 20050211
  Serious: Yes (Death)
  Sender: FDA-Public Use
  Company Number: USA040772599

PATIENT
  Age: 57 Year
  Sex: Male
  Weight: 79 kg

DRUGS (5)
  1. ZYPREXA [Suspect]
     Indication: BIPOLAR I DISORDER
     Dosage: 30 MG DAY
  2. KLONOPIN [Concomitant]
  3. ARTANE [Concomitant]
  4. PAXIL [Concomitant]
  5. TRAMADOL HCL [Concomitant]

REACTIONS (5)
  - ACCIDENT [None]
  - BLADDER DISORDER [None]
  - CRYING [None]
  - DRUG TOXICITY [None]
  - DYSURIA [None]
